FAERS Safety Report 10900188 (Version 1)
Quarter: 2015Q1

REPORT INFORMATION
  Report Type: Spontaneous
  Country: US (occurrence: US)
  Receive Date: 20150310
  Receipt Date: 20150310
  Transmission Date: 20150721
  Serious: Yes (Other)
  Sender: FDA-Public Use
  Company Number: US-AUROBINDO-AUR-APL-2015-01827

PATIENT
  Age: 30 Year
  Sex: Female

DRUGS (1)
  1. LEVOFLOXACIN. [Suspect]
     Active Substance: LEVOFLOXACIN
     Indication: PRODUCT USED FOR UNKNOWN INDICATION
     Dosage: UNK
     Route: 065

REACTIONS (5)
  - Jaundice [Recovered/Resolved]
  - Vaginal haemorrhage [Recovered/Resolved]
  - Hepatic failure [Recovered/Resolved]
  - Vanishing bile duct syndrome [Recovered/Resolved]
  - Stevens-Johnson syndrome [Recovered/Resolved]
